FAERS Safety Report 15293633 (Version 1)
Quarter: 2018Q4

REPORT INFORMATION
  Report Type: Spontaneous
  Country: ES (occurrence: ES)
  Receive Date: 20180820
  Receipt Date: 20180820
  Transmission Date: 20190204
  Serious: Yes (Other)
  Sender: FDA-Public Use
  Company Number: ES-TEVA-2018-ES-944551

PATIENT
  Age: 63 Year
  Sex: Male

DRUGS (2)
  1. BUPRENORFINA (814A) [Suspect]
     Active Substance: BUPRENORPHINE
     Route: 062
     Dates: start: 201807
  2. OXICODONA (1348A) [Interacting]
     Active Substance: OXYCODONE
     Route: 048
     Dates: start: 201807

REACTIONS (3)
  - Urinary retention [Recovered/Resolved]
  - Malaise [Recovered/Resolved]
  - Labelled drug-drug interaction medication error [Recovered/Resolved]

NARRATIVE: CASE EVENT DATE: 201807
